FAERS Safety Report 24460715 (Version 1)
Quarter: 2024Q4

REPORT INFORMATION
  Report Type: Spontaneous
  Country: US (occurrence: None)
  Receive Date: 20241018
  Receipt Date: 20241018
  Transmission Date: 20250115
  Serious: Yes (Hospitalization)
  Sender: Public
  Company Number: None

PATIENT
  Sex: Female

DRUGS (4)
  1. WINREVAIR [Suspect]
     Active Substance: SOTATERCEPT-CSRK
     Dosage: FREQUENCY : 3 TIMES A WEEK;?
     Route: 058
     Dates: start: 202406
  2. VELETRI SDV [Concomitant]
  3. SILDENAFIL CITRATE [Concomitant]
  4. OPSUMIT [Concomitant]

REACTIONS (3)
  - Vascular device infection [None]
  - Therapy interrupted [None]
  - Weight decreased [None]
